FAERS Safety Report 15229283 (Version 1)
Quarter: 2018Q3

REPORT INFORMATION
  Report Type: Spontaneous
  Country: US (occurrence: US)
  Receive Date: 20180801
  Receipt Date: 20180801
  Transmission Date: 20181010
  Serious: No
  Sender: FDA-Public Use
  Company Number: US-ASTRAZENECA-2018SE95639

PATIENT
  Age: 30381 Day
  Sex: Male

DRUGS (3)
  1. MOVANTIK [Suspect]
     Active Substance: NALOXEGOL OXALATE
     Indication: CONSTIPATION
     Route: 048
     Dates: start: 20180423
  2. METHADONE [Concomitant]
     Active Substance: METHADONE HYDROCHLORIDE
     Indication: PAIN
     Route: 048
     Dates: start: 1970
  3. ATIVAN [Concomitant]
     Active Substance: LORAZEPAM
     Indication: IRRITABILITY
     Dosage: UNKNOWN
     Route: 048
     Dates: start: 2018

REACTIONS (6)
  - Withdrawal syndrome [Unknown]
  - Hyperhidrosis [Unknown]
  - Irritability [Unknown]
  - Gastrointestinal disorder [Unknown]
  - Blood glucose increased [Unknown]
  - Anaemia [Unknown]

NARRATIVE: CASE EVENT DATE: 20180717
